FAERS Safety Report 10136820 (Version 2)
Quarter: 2014Q2

REPORT INFORMATION
  Report Type: Spontaneous
  Country: GB (occurrence: None)
  Receive Date: 20140425
  Receipt Date: 20140508
  Transmission Date: 20141212
  Serious: Yes (Life-Threatening)
  Sender: FDA-Public Use
  Company Number: 2302900

PATIENT
  Age: 84 Year
  Sex: Female
  Weight: 83.4 kg

DRUGS (3)
  1. ATRACURIUM [Suspect]
     Indication: ENDOTRACHEAL INTUBATION
     Route: 042
     Dates: start: 20140326
  2. FLUCLOXACILLIN [Suspect]
     Indication: ANTIBIOTIC PROPHYLAXIS
     Route: 042
     Dates: start: 20140326
  3. GENTAMICIN [Concomitant]

REACTIONS (4)
  - Oxygen saturation decreased [None]
  - Bronchospasm [None]
  - Hypotension [None]
  - No therapeutic response [None]
